FAERS Safety Report 8726047 (Version 4)
Quarter: 2012Q4

REPORT INFORMATION
  Report Type: 
  Country: JP (occurrence: JP)
  Receive Date: 20120816
  Receipt Date: 20120904
  Transmission Date: 20130627
  Serious: Yes (Hospitalization)
  Sender: FDA-Public Use
  Company Number: JP-JNJFOC-20120807077

PATIENT
  Age: 6 None
  Sex: Male

DRUGS (1)
  1. TRAMCET [Suspect]
     Indication: BACK PAIN
     Dosage: once daily
     Route: 048
     Dates: start: 201204

REACTIONS (2)
  - Convulsion [Recovered/Resolved]
  - Epilepsy [Unknown]
